FAERS Safety Report 5097384-0 (Version None)
Quarter: 2006Q3

REPORT INFORMATION
  Report Type: 
  Country: None (occurrence: None)
  Receive Date: 20060906
  Receipt Date: 20060818
  Transmission Date: 20061208
  Serious: Yes (Death, Hospitalization)
  Sender: FDA-Public Use
  Company Number: CA-BRISTOL-MYERS SQUIBB COMPANY-13485792

PATIENT
  Age: 47 Year
  Sex: Female

DRUGS (6)
  1. STAVUDINE [Suspect]
  2. DIDANOSINE [Suspect]
  3. NEVIRAPINE [Suspect]
  4. ANTIBIOTIC THERAPY [Concomitant]
     Indication: PNEUMONIA
  5. BENZTROPINE MESYLATE [Concomitant]
  6. LOXAPINE [Concomitant]

REACTIONS (2)
  - LACTIC ACIDOSIS [None]
  - METABOLIC DISORDER [None]
